FAERS Safety Report 9201267 (Version 1)
Quarter: 2013Q2

REPORT INFORMATION
  Report Type: Spontaneous
  Country: NL (occurrence: NL)
  Receive Date: 20130401
  Receipt Date: 20130401
  Transmission Date: 20140414
  Serious: Yes (Hospitalization)
  Sender: FDA-Public Use
  Company Number: PHHY2013NL030905

PATIENT
  Age: 65 Year
  Sex: Male

DRUGS (4)
  1. ZOMETA [Suspect]
     Indication: PROSTATE CANCER METASTATIC
     Dosage: 4 MG,4 MG/100 ML 1X PER 28 DAYS
     Route: 041
  2. ZOMETA [Suspect]
     Dosage: 4 MG,4 MG/100 ML 1X PER 28 DAYS
     Route: 041
     Dates: start: 20121106
  3. ZOMETA [Suspect]
     Dosage: 4 MG,4 MG/100 ML 1X PER 28 DAYS
     Route: 041
     Dates: start: 20130227
  4. ZOMETA [Suspect]
     Dosage: 4 MG,4 MG/100 ML 1X PER 28 DAYS
     Route: 041
     Dates: start: 20130327

REACTIONS (5)
  - General physical condition abnormal [Unknown]
  - Haemoglobin decreased [Unknown]
  - Malaise [Recovering/Resolving]
  - Vomiting [Unknown]
  - Constipation [Unknown]
